FAERS Safety Report 8485589-8 (Version None)
Quarter: 2012Q3

REPORT INFORMATION
  Report Type: 
  Country: None (occurrence: None)
  Receive Date: 20120703
  Receipt Date: 20120626
  Transmission Date: 20120928
  Serious: Yes (Other)
  Sender: FDA-Public Use
  Company Number: FR-PFIZER INC-2012014878

PATIENT
  Age: 13 Month
  Sex: Male
  Weight: 11.5 kg

DRUGS (1)
  1. ANTIHEMOPHILIC FACTOR (HUMAN) [Suspect]
     Indication: FACTOR VIII DEFICIENCY
     Dosage: 500 IU, CYCLIC, ONCE A WEEK
     Route: 042
     Dates: start: 20111125

REACTIONS (1)
  - FACTOR VIII INHIBITION [None]
